FAERS Safety Report 7439148-6 (Version None)
Quarter: 2011Q2

REPORT INFORMATION
  Report Type: 
  Country: None (occurrence: None)
  Receive Date: 20110427
  Receipt Date: 20101209
  Transmission Date: 20111010
  Serious: Yes (Other)
  Sender: FDA-Public Use
  Company Number: US-BAYER-201013357NA

PATIENT
  Age: 51 Year
  Sex: Female
  Weight: 73 kg

DRUGS (38)
  1. YASMIN [Suspect]
     Indication: PREMENSTRUAL SYNDROME
     Route: 048
     Dates: start: 20030514, end: 20061001
  2. ALBUTEROL [Concomitant]
     Indication: ASTHMA
     Dates: start: 19900101
  3. TPN [Concomitant]
     Indication: PRODUCT USED FOR UNKNOWN INDICATION
  4. AMBIEN [Concomitant]
     Indication: SLEEP DISORDER
     Dates: start: 20080101
  5. ESTER C [Concomitant]
  6. LIPITAC [Concomitant]
  7. IBUPROFEN [Concomitant]
     Indication: MIGRAINE
     Dates: start: 20080101
  8. MOTRIN [Concomitant]
     Indication: MIGRAINE
     Dates: start: 20080101
  9. PLAQUENIL [Concomitant]
     Indication: SYSTEMIC LUPUS ERYTHEMATOSUS
     Dates: start: 20060101
  10. LOVAZA [Concomitant]
  11. LEVAQUIN [Concomitant]
  12. TEMAZEPAM [Concomitant]
     Indication: ASTHMA
  13. FLAXSEED OIL [Concomitant]
  14. PHENTERMINE [Concomitant]
     Indication: WEIGHT DECREASED
     Dates: start: 20090101
  15. LORATADINE [Concomitant]
     Indication: SEASONAL ALLERGY
     Dates: start: 20000101, end: 20000101
  16. IRON [Concomitant]
  17. COENZYME Q10 [Concomitant]
  18. ZINC [Concomitant]
  19. FLONASE [Concomitant]
     Indication: HYPERSENSITIVITY
  20. CLARINEX [Concomitant]
     Indication: HYPERSENSITIVITY
  21. YAZ [Suspect]
     Indication: PREMENSTRUAL SYNDROME
     Route: 048
     Dates: start: 20061101, end: 20080401
  22. AMITRIPTYLINE HCL [Concomitant]
     Indication: SLEEP DISORDER
     Dates: start: 20080101
  23. ROZEREM [Concomitant]
     Indication: MYOCARDIAL ISCHAEMIA
     Dates: start: 20080101
  24. LUNESTA [Concomitant]
     Indication: SLEEP DISORDER
     Dates: start: 20080101
  25. CALCIUM [Concomitant]
  26. TPN [Concomitant]
  27. EVENING PRIMROSE OIL [Concomitant]
  28. YASMIN [Suspect]
     Indication: MENOPAUSE
  29. SINGULAIR [Concomitant]
     Indication: ASTHMA
     Dates: start: 19900101
  30. MERIDIA [Concomitant]
     Indication: WEIGHT DECREASED
     Dates: start: 20030327, end: 20090504
  31. WOMENS ULTRA MEGA [Concomitant]
  32. VITAMIN D [Concomitant]
  33. YAZ [Suspect]
     Indication: MENOPAUSE
  34. ADVAIR DISKUS 100/50 [Concomitant]
     Indication: ASTHMA
     Dates: start: 19900101
  35. ZYRTEC [Concomitant]
     Indication: SLEEP DISORDER
     Dates: start: 20080101
  36. MAGNESIUM [Concomitant]
  37. CHROMIUM CHLORIDE [Concomitant]
  38. ZYRTEC [Concomitant]
     Indication: HYPERSENSITIVITY

REACTIONS (6)
  - ABDOMINAL DISTENSION [None]
  - HEADACHE [None]
  - CEREBROVASCULAR ACCIDENT [None]
  - HEMICEPHALALGIA [None]
  - MUSCULAR WEAKNESS [None]
  - LISTLESS [None]
